FAERS Safety Report 6562034-0 (Version None)
Quarter: 2010Q1

REPORT INFORMATION
  Report Type: 
  Country: None (occurrence: None)
  Receive Date: 20100130
  Receipt Date: 20091204
  Transmission Date: 20100710
  Serious: No
  Sender: FDA-Public Use
  Company Number: US-ABBOTT-09P-163-0601146-00

PATIENT
  Sex: Female
  Weight: 72.64 kg

DRUGS (3)
  1. HUMIRA [Suspect]
     Indication: CROHN'S DISEASE
     Dates: start: 20090921
  2. HUMIRA [Suspect]
  3. FETERMINE [Concomitant]
     Indication: WEIGHT DECREASED
     Dates: start: 20090801

REACTIONS (3)
  - DYSGEUSIA [None]
  - ERYTHEMA [None]
  - RASH [None]
